FAERS Safety Report 17868883 (Version 3)
Quarter: 2020Q2

REPORT INFORMATION
  Report Type: Report from Study
  Country: US (occurrence: US)
  Receive Date: 20200607
  Receipt Date: 20200625
  Transmission Date: 20200714
  Serious: Yes (Hospitalization, Other)
  Sender: FDA-Public Use
  Company Number: US-ROCHE-2614927

PATIENT
  Age: 82 Year
  Sex: Male
  Weight: 69.92 kg

DRUGS (2)
  1. OBINUTUZUMAB. [Suspect]
     Active Substance: OBINUTUZUMAB
     Indication: NON-HODGKIN^S LYMPHOMA UNSPECIFIED HISTOLOGY INDOLENT
     Dosage: OVER 4-5 HOURS ON DAYS 1, 2, 8, 15 AND 22 OF COURSE 1 AND ON DAY 1 OF EACH SUBSEQUENT COURSE
     Route: 042
     Dates: start: 20181009
  2. LENALIDOMIDE [Suspect]
     Active Substance: LENALIDOMIDE
     Indication: NON-HODGKIN^S LYMPHOMA UNSPECIFIED HISTOLOGY INDOLENT
     Dosage: ON DAYS 2-22
     Route: 048
     Dates: start: 20181009

REACTIONS (3)
  - Gait disturbance [Recovered/Resolved]
  - Infection [Unknown]
  - Infestation [Unknown]

NARRATIVE: CASE EVENT DATE: 20200601
